FAERS Safety Report 11275622 (Version 1)
Quarter: 2015Q3

REPORT INFORMATION
  Report Type: Spontaneous
  Country: US (occurrence: US)
  Receive Date: 20150716
  Receipt Date: 20150716
  Transmission Date: 20151125
  Serious: No
  Sender: FDA-Public Use
  Company Number: US-ELI_LILLY_AND_COMPANY-US201507005314

PATIENT
  Sex: Female

DRUGS (13)
  1. FOLIC ACID. [Concomitant]
     Active Substance: FOLIC ACID
  2. KLOR-CON [Concomitant]
     Active Substance: POTASSIUM CHLORIDE
  3. SYNTHROID [Concomitant]
     Active Substance: LEVOTHYROXINE SODIUM
  4. NUVIGIL [Concomitant]
     Active Substance: ARMODAFINIL
  5. EXALGO [Concomitant]
     Active Substance: HYDROMORPHONE HYDROCHLORIDE
     Dosage: 32 MG, TWO NIGHTLY AND 8 MG TWICE DURING THE DAY
  6. OXYBUTYNIN [Concomitant]
     Active Substance: OXYBUTYNIN
  7. NOVOLOG [Concomitant]
     Active Substance: INSULIN ASPART
  8. PREDNISONE. [Concomitant]
     Active Substance: PREDNISONE
     Indication: HAEMOGLOBIN DECREASED
  9. FORTEO [Suspect]
     Active Substance: TERIPARATIDE
     Indication: OSTEOPOROSIS
     Dosage: UNK
     Route: 065
     Dates: start: 201407
  10. EFFEXOR [Concomitant]
     Active Substance: VENLAFAXINE HYDROCHLORIDE
  11. NEURONTIN [Concomitant]
     Active Substance: GABAPENTIN
  12. MONTELUKAST [Concomitant]
     Active Substance: MONTELUKAST SODIUM
  13. VITAMIN D [Concomitant]
     Active Substance: CHOLECALCIFEROL

REACTIONS (6)
  - Sleep disorder [Unknown]
  - Upper limb fracture [Not Recovered/Not Resolved]
  - Neuropathy peripheral [Unknown]
  - Fall [Not Recovered/Not Resolved]
  - Wound [Unknown]
  - Pain [Unknown]

NARRATIVE: CASE EVENT DATE: 201407
